FAERS Safety Report 25041297 (Version 1)
Quarter: 2025Q1

REPORT INFORMATION
  Report Type: Spontaneous
  Country: US (occurrence: US)
  Receive Date: 20250305
  Receipt Date: 20250305
  Transmission Date: 20250409
  Serious: No
  Sender: IPSEN BIOPHARMACEUTICALS, INC.
  Company Number: US-IPSEN Group, Research and Development-2025-04712

PATIENT
  Age: 23 Year
  Sex: Male

DRUGS (3)
  1. BYLVAY [Suspect]
     Active Substance: ODEVIXIBAT
     Indication: Liver disorder
     Dosage: TAKE TWO 1200 MCG ORAL CAPSULES BY MOUTH ONCE DAILY WITH A MEAL.
     Route: 048
     Dates: start: 20250128
  2. HYDROXYZINE [Concomitant]
     Active Substance: HYDROXYZINE HYDROCHLORIDE
  3. URSO 250 [DSC] [Concomitant]

REACTIONS (2)
  - Periorbital swelling [Not Recovered/Not Resolved]
  - Oedema peripheral [Not Recovered/Not Resolved]
